FAERS Safety Report 4546774-0 (Version None)
Quarter: 2005Q1

REPORT INFORMATION
  Report Type: 
  Country: None (occurrence: None)
  Receive Date: 20050105
  Receipt Date: 20041229
  Transmission Date: 20050727
  Serious: Yes (Hospitalization)
  Sender: FDA-Public Use
  Company Number: 200413446GDS

PATIENT
  Age: 66 Year
  Sex: Male

DRUGS (2)
  1. ASPIRIN [Suspect]
     Indication: ARTERIOPATHIC DISEASE
     Dosage: 100 MG, TOTAL DAILY, ORAL
     Route: 048
     Dates: end: 20041130
  2. SINTROM [Suspect]
     Indication: ANTICOAGULANT THERAPY
     Dosage: PRN, ORAL
     Route: 048
     Dates: end: 20041130

REACTIONS (7)
  - CEREBRAL HAEMORRHAGE [None]
  - EYE MOVEMENT DISORDER [None]
  - HEADACHE [None]
  - HEMIPLEGIA [None]
  - HYPERTENSION [None]
  - SOMNOLENCE [None]
  - VOMITING [None]
